FAERS Safety Report 7584783-8 (Version None)
Quarter: 2011Q2

REPORT INFORMATION
  Report Type: 
  Country: None (occurrence: None)
  Receive Date: 20110630
  Receipt Date: 20110617
  Transmission Date: 20111010
  Serious: Yes (Other)
  Sender: FDA-Public Use
  Company Number: PHHY2011JP53642

PATIENT
  Age: 43 Year
  Sex: Male

DRUGS (4)
  1. SIMULECT [Suspect]
     Indication: HEART TRANSPLANT
     Dosage: 20 MG
     Route: 042
     Dates: start: 20110605, end: 20110605
  2. SIMULECT [Suspect]
     Dosage: 20 MG
     Route: 042
     Dates: start: 20110609, end: 20110609
  3. TACROLIMUS [Concomitant]
     Indication: HEART TRANSPLANT
     Dosage: UNK UKN, UNK
     Route: 048
     Dates: start: 20110609
  4. CELLCEPT [Concomitant]
     Indication: HEART TRANSPLANT
     Dosage: 1.5 G, UNK
     Route: 048
     Dates: start: 20110607, end: 20110613

REACTIONS (3)
  - BLOOD CREATININE INCREASED [None]
  - CONVULSION [None]
  - OFF LABEL USE [None]
